FAERS Safety Report 11231156 (Version 1)
Quarter: 2015Q3

REPORT INFORMATION
  Report Type: Spontaneous
  Country: IT (occurrence: IT)
  Receive Date: 20150701
  Receipt Date: 20150701
  Transmission Date: 20151125
  Serious: Yes (Other)
  Sender: FDA-Public Use
  Company Number: IT-LEO PHARMA-235179

PATIENT
  Age: 60 Year
  Sex: Female
  Weight: 75 kg

DRUGS (1)
  1. PICATO [Suspect]
     Active Substance: INGENOL MEBUTATE
     Indication: ACTINIC KERATOSIS
     Dosage: 1 TUBE DAILY
     Route: 061
     Dates: start: 20150601, end: 20150602

REACTIONS (5)
  - Application site vesicles [Recovered/Resolved with Sequelae]
  - Incorrect drug administration duration [Unknown]
  - Application site pustules [Recovered/Resolved with Sequelae]
  - Application site erythema [Recovered/Resolved with Sequelae]
  - Application site discolouration [Recovered/Resolved with Sequelae]
